FAERS Safety Report 9817822 (Version 1)
Quarter: 2013Q4

REPORT INFORMATION
  Report Type: Spontaneous
  Country: US (occurrence: None)
  Receive Date: 20131223
  Receipt Date: 20131223
  Transmission Date: 20140711
  Serious: Yes (Other)
  Sender: FDA-Public Use
  Company Number: 219739

PATIENT
  Sex: Female

DRUGS (5)
  1. PICATO [Suspect]
     Indication: PRECANCEROUS SKIN LESION
     Route: 061
     Dates: start: 20121120, end: 20121121
  2. HYDROCHLORATHIAZIDE [Concomitant]
  3. CELEBREX (CELECOXIB) [Concomitant]
  4. LEXAPRO (ESCITALOPRAM OXALATE) [Concomitant]
  5. PREVACID (LANSOPRAZOLE) [Concomitant]

REACTIONS (8)
  - Application site irritation [None]
  - Application site erythema [None]
  - Application site swelling [None]
  - Application site vesicles [None]
  - Incorrect dose administered [None]
  - Drug administered at inappropriate site [None]
  - Drug administration error [None]
  - Incorrect drug administration duration [None]
